FAERS Safety Report 4900733-4 (Version None)
Quarter: 2006Q1

REPORT INFORMATION
  Report Type: 
  Country: None (occurrence: None)
  Receive Date: 20060201
  Receipt Date: 20060120
  Transmission Date: 20060701
  Serious: Yes (Hospitalization, Other)
  Sender: FDA-Public Use
  Company Number: 2006-01-1332

PATIENT
  Age: 88 Year
  Sex: Female

DRUGS (15)
  1. AERIUS [Suspect]
     Dosage: 1 TABLET QD ORAL
     Route: 048
     Dates: start: 20051214, end: 20051222
  2. NEURONTIN [Suspect]
     Dosage: 100 MG TID ORAL
     Route: 048
     Dates: end: 20051222
  3. OXYCODONE HCL [Suspect]
     Dosage: QD ORAL
     Route: 048
     Dates: end: 20051222
  4. DEROXAT [Suspect]
     Dosage: 20 MG QD ORAL
     Route: 048
  5. COVERSYL [Concomitant]
  6. FUROSEMIDE [Concomitant]
  7. IKOREL             (NICORANDIL) [Concomitant]
  8. TRINITRINE TRANSDERMAL [Concomitant]
  9. PREVISCAN [Concomitant]
  10. ISKEDYL [Concomitant]
  11. DOLIPRANE [Concomitant]
  12. TETANUS VACCINE [Concomitant]
  13. LOVENOX [Concomitant]
  14. AUGMENTIN '125' [Concomitant]
  15. AMYCOR [Concomitant]

REACTIONS (6)
  - CONFUSIONAL STATE [None]
  - ELECTROENCEPHALOGRAM ABNORMAL [None]
  - FACIAL BONES FRACTURE [None]
  - FALL [None]
  - HALLUCINATION, VISUAL [None]
  - SOMNOLENCE [None]
